FAERS Safety Report 8181125-4 (Version None)
Quarter: 2012Q1

REPORT INFORMATION
  Report Type: 
  Country: None (occurrence: None)
  Receive Date: 20120302
  Receipt Date: 20120301
  Transmission Date: 20120608
  Serious: Yes (Death, Hospitalization)
  Sender: FDA-Public Use
  Company Number: US-GLAXOSMITHKLINE-A0765464A

PATIENT
  Age: 61 Year
  Sex: Male

DRUGS (7)
  1. REMERON [Concomitant]
  2. COZAAR [Concomitant]
  3. AVANDIA [Suspect]
     Indication: TYPE 2 DIABETES MELLITUS
     Route: 048
     Dates: start: 20010430, end: 20021119
  4. INSULIN [Concomitant]
  5. TICLID [Concomitant]
  6. MELLARIL [Concomitant]
  7. CARDIZEM [Concomitant]

REACTIONS (4)
  - CARDIAC FAILURE CONGESTIVE [None]
  - DEATH [None]
  - CORONARY ARTERY DISEASE [None]
  - MYOCARDIAL INFARCTION [None]
